FAERS Safety Report 5284718-7 (Version None)
Quarter: 2007Q1

REPORT INFORMATION
  Report Type: 
  Country: None (occurrence: None)
  Receive Date: 20061222
  Receipt Date: 20060707
  Transmission Date: 20070707
  Serious: Yes (Other)
  Sender: FDA-Public Use
  Company Number: PHEH2006US08726

PATIENT
  Sex: Female

DRUGS (7)
  1. VIVELLE [Suspect]
     Indication: HORMONE REPLACEMENT THERAPY
     Dosage: TRANSDERMAL
  2. ESTRADERM [Suspect]
  3. PROVERA [Suspect]
  4. PREMPRO [Suspect]
  5. PREMARIN [Suspect]
  6. ESTRATES (ESTROGENS ESTERIFIED, METHYLTESTOSTERONE) [Suspect]
  7. MEDROXYPROGESTERONE [Suspect]

REACTIONS (1)
  - BREAST CANCER [None]
